FAERS Safety Report 9452117 (Version 27)
Quarter: 2016Q1

REPORT INFORMATION
  Report Type: Report from Study
  Country: CA (occurrence: CA)
  Receive Date: 20130812
  Receipt Date: 20160307
  Transmission Date: 20160526
  Serious: Yes (Other)
  Sender: FDA-Public Use
  Company Number: CA-ROCHE-1258857

PATIENT
  Age: 64 Year
  Sex: Female
  Weight: 88 kg

DRUGS (12)
  1. LIPITOR [Concomitant]
     Active Substance: ATORVASTATIN CALCIUM
  2. ACTEMRA [Suspect]
     Active Substance: TOCILIZUMAB
     Route: 042
     Dates: start: 20160201, end: 20160303
  3. CYMBALTA [Concomitant]
     Active Substance: DULOXETINE HYDROCHLORIDE
  4. ACTEMRA [Suspect]
     Active Substance: TOCILIZUMAB
     Indication: RHEUMATOID ARTHRITIS
     Route: 042
     Dates: start: 20120705
  5. ACTEMRA [Suspect]
     Active Substance: TOCILIZUMAB
     Route: 042
     Dates: start: 20131104
  6. ACTEMRA [Suspect]
     Active Substance: TOCILIZUMAB
     Route: 042
     Dates: start: 20140904
  7. ACTEMRA [Suspect]
     Active Substance: TOCILIZUMAB
     Route: 042
     Dates: start: 20120801
  8. TYLENOL [Concomitant]
     Active Substance: ACETAMINOPHEN
     Dosage: AS REQUIRED
     Route: 065
  9. PREVACID [Concomitant]
     Active Substance: LANSOPRAZOLE
  10. FOLIC ACID. [Concomitant]
     Active Substance: FOLIC ACID
  11. VOLTAREN [Concomitant]
     Active Substance: DICLOFENAC SODIUM
  12. AVALIDE [Concomitant]
     Active Substance: HYDROCHLOROTHIAZIDE\IRBESARTAN

REACTIONS (25)
  - Infected skin ulcer [Recovered/Resolved]
  - Pneumonia [Unknown]
  - Aphthous ulcer [Not Recovered/Not Resolved]
  - Heart rate decreased [Unknown]
  - Drug ineffective [Unknown]
  - Paronychia [Recovered/Resolved]
  - Infusion related reaction [Unknown]
  - Hypotension [Unknown]
  - Blood pressure fluctuation [Unknown]
  - Blood pressure diastolic increased [Unknown]
  - Blood pressure diastolic increased [Unknown]
  - Wound [Not Recovered/Not Resolved]
  - Weight decreased [Unknown]
  - Cough [Not Recovered/Not Resolved]
  - Rhinorrhoea [Not Recovered/Not Resolved]
  - Infection [Not Recovered/Not Resolved]
  - Localised infection [Recovered/Resolved]
  - Wound secretion [Not Recovered/Not Resolved]
  - Heart rate decreased [Unknown]
  - Pharyngitis streptococcal [Unknown]
  - Scab [Not Recovered/Not Resolved]
  - Skin ulcer [Not Recovered/Not Resolved]
  - Vasculitis [Recovered/Resolved]
  - Hypertension [Unknown]
  - Blood pressure fluctuation [Unknown]

NARRATIVE: CASE EVENT DATE: 2013
